FAERS Safety Report 10398893 (Version 1)
Quarter: 2014Q3

REPORT INFORMATION
  Report Type: Spontaneous
  Country: GB (occurrence: GB)
  Receive Date: 20140821
  Receipt Date: 20140821
  Transmission Date: 20150326
  Serious: Yes (Other)
  Sender: FDA-Public Use
  Company Number: GB-PAR PHARMACEUTICAL, INC-2014SCPR009340

PATIENT

DRUGS (6)
  1. PARACETAMOL [Concomitant]
     Active Substance: ACETAMINOPHEN
     Indication: FACIAL PAIN
     Dosage: UNK, UNKNOWN
     Route: 065
  2. MONTELUKAST [Concomitant]
     Active Substance: MONTELUKAST SODIUM
     Indication: ASTHMA
     Dosage: UNK, UNKNOWN
     Route: 065
  3. PETHIDINE [Concomitant]
     Active Substance: MEPERIDINE
     Indication: FACIAL PAIN
     Dosage: UNK, UNKNOWN
     Route: 065
  4. CARBOCYSTEINE [Concomitant]
     Active Substance: CARBOCYSTEINE
     Indication: ASTHMA
     Dosage: UNK, UNKNOWN
     Route: 065
  5. INHALERS [Concomitant]
     Active Substance: UNSPECIFIED INGREDIENT
     Indication: ASTHMA
     Dosage: UNK, UNKNOWN
     Route: 065
  6. KETALAR [Suspect]
     Active Substance: KETAMINE HYDROCHLORIDE
     Indication: FACIAL PAIN
     Dosage: 150 MG, QID
     Route: 065

REACTIONS (3)
  - Off label use [Unknown]
  - Hepatic cirrhosis [Unknown]
  - Biliary dilatation [Unknown]
